FAERS Safety Report 6486545-1 (Version None)
Quarter: 2009Q4

REPORT INFORMATION
  Report Type: 
  Country: None (occurrence: None)
  Receive Date: 20091209
  Receipt Date: 20091209
  Transmission Date: 20100525
  Serious: Yes (Hospitalization)
  Sender: FDA-Public Use
  Company Number: None

PATIENT
  Age: 39 Year
  Sex: Female
  Weight: 70.1 kg

DRUGS (3)
  1. LISINOPRIL [Suspect]
     Indication: HYPERTENSION
     Dosage: 10MG DAILY PO
     Route: 048
  2. M.V.I. [Concomitant]
  3. LOESTRIN 24 FE [Concomitant]

REACTIONS (3)
  - LIP SWELLING [None]
  - OEDEMA MOUTH [None]
  - SWELLING FACE [None]
